FAERS Safety Report 22113775 (Version 1)
Quarter: 2023Q1

REPORT INFORMATION
  Report Type: Report from Study
  Country: US (occurrence: US)
  Receive Date: 20230320
  Receipt Date: 20230320
  Transmission Date: 20230418
  Serious: Yes (Hospitalization, Other)
  Sender: FDA-Public Use
  Company Number: US-ABBVIE-4344632

PATIENT
  Age: 79 Year
  Sex: Female
  Weight: 49 kg

DRUGS (1)
  1. HUMIRA [Suspect]
     Active Substance: ADALIMUMAB
     Indication: Rheumatoid arthritis
     Dosage: CITRATE FREE
     Route: 058
     Dates: start: 202107

REACTIONS (9)
  - Cerebrovascular accident [Not Recovered/Not Resolved]
  - Rheumatoid arthritis [Not Recovered/Not Resolved]
  - Monoparesis [Not Recovered/Not Resolved]
  - Arthritis [Not Recovered/Not Resolved]
  - Large intestine polyp [Unknown]
  - Cerebral thrombosis [Unknown]
  - Blood pressure abnormal [Unknown]
  - Blood cholesterol abnormal [Unknown]
  - Restless legs syndrome [Unknown]

NARRATIVE: CASE EVENT DATE: 20211201
